FAERS Safety Report 10058010 (Version 1)
Quarter: 2014Q2

REPORT INFORMATION
  Report Type: Spontaneous
  Country: US (occurrence: None)
  Receive Date: 20140403
  Receipt Date: 20140403
  Transmission Date: 20141212
  Serious: Yes (Other)
  Sender: FDA-Public Use
  Company Number: None

PATIENT
  Sex: Female

DRUGS (1)
  1. ALPRAZOLAM [Suspect]
     Indication: POST-TRAUMATIC STRESS DISORDER
     Dosage: ONE TABLET, FOUR TIMES DAILY, TAKEN BY MOUTH
     Route: 048
     Dates: start: 20010714, end: 20140402

REACTIONS (3)
  - Thyroid disorder [None]
  - Diabetes mellitus [None]
  - Amenorrhoea [None]
